FAERS Safety Report 7899496 (Version 3)
Quarter: 2012Q4

REPORT INFORMATION
  Report Type: Report from Study
  Country: US (occurrence: US)
  Receive Date: 20110414
  Receipt Date: 20121024
  Transmission Date: 20130627
  Serious: Yes (Hospitalization)
  Sender: FDA-Public Use
  Company Number: US-BAXTER-2011BH008952

PATIENT
  Age: 70 Year
  Sex: Female
  Weight: 59.02 kg

DRUGS (18)
  1. CYTOXAN? (CYCLOPHOSPHAMIDE FOR INJECTION, USP) [Suspect]
     Indication: MULTIPLE MYELOMA
     Route: 042
     Dates: start: 20101123, end: 20101126
  2. DEXAMETHASONE [Suspect]
     Indication: MULTIPLE MYELOMA
     Route: 042
     Dates: start: 20101123, end: 20101126
  3. DEXAMETHASONE [Suspect]
     Route: 048
     Dates: start: 20101025, end: 20101104
  4. BORTEZOMIB [Suspect]
     Indication: MULTIPLE MYELOMA
     Route: 042
     Dates: start: 20101025, end: 20101104
  5. ETOPOSIDE [Suspect]
     Indication: MULTIPLE MYELOMA
     Route: 042
     Dates: start: 20101123, end: 20101126
  6. CISPLATIN [Suspect]
     Indication: MULTIPLE MYELOMA
     Route: 042
     Dates: start: 20101123, end: 20101126
  7. ACYCLOVIR [Concomitant]
     Indication: INFECTION
     Route: 065
     Dates: start: 20100108
  8. DARBEPOETIN ALFA [Concomitant]
     Indication: ANAEMIA
     Route: 065
     Dates: start: 20100108
  9. FAMOTIDINE [Concomitant]
     Indication: GASTROESOPHAGEAL REFLUX DISEASE
     Route: 065
     Dates: start: 20100108
  10. FLUCONAZOLE [Concomitant]
     Indication: INFECTION
     Route: 065
     Dates: start: 20100108
  11. LIDOCAINE [Concomitant]
     Indication: PAIN
     Route: 065
     Dates: start: 20101018
  12. OXYCODONE [Concomitant]
     Indication: PAIN
     Route: 065
     Dates: start: 20101025
  13. PROCHLORPERAZINE MALEATE [Concomitant]
     Indication: NAUSEA
     Route: 065
     Dates: start: 20100108
  14. ZOLEDRONIC ACID [Concomitant]
     Indication: BONE DISORDER
     Route: 065
     Dates: start: 2009
  15. TYLENOL W/CODEINE NO. 3 [Concomitant]
     Indication: PAIN
     Route: 065
     Dates: start: 20101018, end: 20101130
  16. BICITRA [Concomitant]
     Indication: PH URINE DECREASED
     Route: 065
     Dates: start: 20101122, end: 20101130
  17. LEVAQUIN [Concomitant]
     Indication: URINARY TRACT INFECTION
     Route: 065
     Dates: start: 20101117, end: 20101122
  18. AZITHROMYCIN [Concomitant]
     Indication: UPPER RESPIRATORY TRACT INFECTION
     Route: 065
     Dates: start: 20101124, end: 20101126

REACTIONS (2)
  - Mental status changes [Recovered/Resolved]
  - Asthenia [Recovered/Resolved]
